FAERS Safety Report 15996769 (Version 1)
Quarter: 2019Q1

REPORT INFORMATION
  Report Type: Spontaneous
  Country: US (occurrence: US)
  Receive Date: 20190222
  Receipt Date: 20190222
  Transmission Date: 20190418
  Serious: Yes (Hospitalization)
  Sender: FDA-Public Use
  Company Number: None

PATIENT
  Sex: Female

DRUGS (3)
  1. XALKORI [Suspect]
     Active Substance: CRIZOTINIB
     Indication: PRODUCT USED FOR UNKNOWN INDICATION
     Route: 048
     Dates: start: 20190103
  2. POTASSIUM TABLET [Concomitant]
     Active Substance: POTASSIUM
  3. ACYCLOVIR TABLET [Concomitant]
     Active Substance: ACYCLOVIR

REACTIONS (1)
  - Chemotherapy [None]
